FAERS Safety Report 5294918-8 (Version None)
Quarter: 2007Q2

REPORT INFORMATION
  Report Type: 
  Country: None (occurrence: None)
  Receive Date: 20070412
  Receipt Date: 20060129
  Transmission Date: 20071010
  Serious: Yes (Death)
  Sender: FDA-Public Use
  Company Number: SE-ROCHE-425167

PATIENT
  Age: 37 Year
  Sex: Female

DRUGS (18)
  1. CYMEVENE [Suspect]
     Dosage: REPORTED AS X 2. HOME PUMP
     Route: 042
     Dates: start: 20041222
  2. CYMEVENE [Suspect]
     Dosage: CYMEVENE POWDER FOR SOLUTION FOR INFUSION 500 MG
     Route: 042
     Dates: start: 20050104, end: 20050105
  3. MABTHERA [Suspect]
     Dosage: DOSAGE REGIMEN REPORTED AS ^750 MG X 2^ - 1 DOSE PER WEEK .
     Route: 042
     Dates: start: 20050105, end: 20050111
  4. VFEND [Suspect]
     Indication: FUNGAL INFECTION
     Dosage: FILM COATED TABLET
     Route: 048
     Dates: start: 20050103, end: 20050106
  5. SANDIMMUNE [Concomitant]
     Indication: CYTOMEGALOVIRUS GASTROINTESTINAL INFECTION
     Dosage: DRUG NAME REPORTED AS SANDIMUN NEORAL.
     Route: 048
     Dates: start: 20050115
  6. FORTUM [Concomitant]
  7. SOLU-CORTEF [Concomitant]
  8. TAVEGYL [Concomitant]
  9. PREDNISOLONE [Concomitant]
  10. MYCOSTATIN [Concomitant]
     Route: 048
  11. FURIX [Concomitant]
  12. MERONEM [Concomitant]
  13. OMEPRAZOLE [Concomitant]
     Route: 048
  14. URSO FALK [Concomitant]
  15. PARACETAMOL [Concomitant]
  16. PENTACARINAT [Concomitant]
  17. CYCLOSPORINE [Concomitant]
  18. UNSPECIFIED DRUG [Concomitant]
     Dosage: REPORTED AS SOLUMEDROL.

REACTIONS (20)
  - ABDOMINAL DISTENSION [None]
  - ANAPHYLACTIC REACTION [None]
  - ANXIETY [None]
  - BLOOD BILIRUBIN INCREASED [None]
  - CHOLESTASIS [None]
  - CONFUSIONAL STATE [None]
  - DEPRESSION [None]
  - DYSPNOEA [None]
  - FATIGUE [None]
  - HALLUCINATION [None]
  - LACTIC ACIDOSIS [None]
  - LEUKOPENIA [None]
  - MULTI-ORGAN FAILURE [None]
  - OEDEMA [None]
  - PAIN [None]
  - PYREXIA [None]
  - RENAL FAILURE ACUTE [None]
  - SOMNOLENCE [None]
  - TACHYCARDIA [None]
  - THROMBOCYTOPENIA [None]
